FAERS Safety Report 5273552-X (Version None)
Quarter: 2007Q1

REPORT INFORMATION
  Report Type: 
  Country: None (occurrence: None)
  Receive Date: 20070320
  Receipt Date: 20070307
  Transmission Date: 20070707
  Serious: Yes (Hospitalization)
  Sender: FDA-Public Use
  Company Number: 2007-00590

PATIENT
  Age: 54 Year
  Sex: Male
  Weight: 65 kg

DRUGS (2)
  1. VELCADE [Suspect]
     Indication: MULTIPLE MYELOMA
     Dosage: 1.30 MG/M2
     Dates: start: 20061107, end: 20070122
  2. DEXAMETHASONE [Suspect]
     Indication: MULTIPLE MYELOMA
     Dosage: 40.00 MG
     Dates: start: 20061107, end: 20070122

REACTIONS (8)
  - CYTOLYTIC HEPATITIS [None]
  - FOCAL NODULAR HYPERPLASIA [None]
  - GASTRITIS [None]
  - HEPATOSPLENOMEGALY [None]
  - HYPERSPLENISM [None]
  - PERITONEAL EFFUSION [None]
  - SERUM FERRITIN INCREASED [None]
  - THROMBOCYTOPENIA [None]
